FAERS Safety Report 8470527-4 (Version None)
Quarter: 2012Q2

REPORT INFORMATION
  Report Type: 
  Country: None (occurrence: None)
  Receive Date: 20120627
  Receipt Date: 20120319
  Transmission Date: 20120825
  Serious: No
  Sender: FDA-Public Use
  Company Number: US-MYLANLABS-2012S1005979

PATIENT
  Age: 74 Year
  Sex: Female
  Weight: 48.99 kg

DRUGS (3)
  1. PERFOROMIST [Suspect]
     Indication: CHRONIC OBSTRUCTIVE PULMONARY DISEASE
     Route: 055
     Dates: start: 20120224
  2. OMEPRAZOLE [Concomitant]
  3. MULTI-VITAMIN [Concomitant]

REACTIONS (1)
  - POLLAKIURIA [None]
